FAERS Safety Report 21586900 (Version 1)
Quarter: 2022Q4

REPORT INFORMATION
  Report Type: Spontaneous
  Country: US (occurrence: None)
  Receive Date: 20221110
  Receipt Date: 20221110
  Transmission Date: 20230112
  Serious: Yes (Hospitalization)
  Sender: FDA-Public Use
  Company Number: None

PATIENT
  Sex: Male

DRUGS (1)
  1. EVEROLIMUS [Suspect]
     Active Substance: EVEROLIMUS
     Dosage: FREQUENCY : DAILY;?
     Route: 048

REACTIONS (8)
  - Hypersensitivity [None]
  - Nasopharyngitis [None]
  - Back pain [None]
  - Pyrexia [None]
  - Acne [None]
  - Decreased appetite [None]
  - Weight decreased [None]
  - Asthenia [None]
